FAERS Safety Report 19974202 (Version 6)
Quarter: 2022Q3

REPORT INFORMATION
  Report Type: Report from Study
  Country: US (occurrence: US)
  Receive Date: 20211020
  Receipt Date: 20220929
  Transmission Date: 20221027
  Serious: No
  Sender: FDA-Public Use
  Company Number: US-NOVARTISTESTPH-NVSC2021US238933

PATIENT
  Sex: Female

DRUGS (2)
  1. ENTRESTO [Suspect]
     Active Substance: SACUBITRIL\VALSARTAN
     Indication: Product used for unknown indication
     Dosage: 1 DOSAGE FORM, BID
     Route: 048
     Dates: start: 202110
  2. DIETARY SUPPLEMENT [Concomitant]
     Active Substance: DIETARY SUPPLEMENT
     Indication: Memory impairment
     Dosage: UNK
     Route: 065

REACTIONS (8)
  - Weight increased [Unknown]
  - Abdominal distension [Not Recovered/Not Resolved]
  - Lymphadenopathy [Unknown]
  - Insomnia [Unknown]
  - Anxiety [Unknown]
  - Transient lingual papillitis [Unknown]
  - Fatigue [Unknown]
  - Product dose omission in error [Unknown]
